FAERS Safety Report 4582808-5 (Version None)
Quarter: 2005Q1

REPORT INFORMATION
  Report Type: 
  Country: None (occurrence: None)
  Receive Date: 20050215
  Receipt Date: 20050209
  Transmission Date: 20050727
  Serious: Yes (Death)
  Sender: FDA-Public Use
  Company Number: US-GLAXOSMITHKLINE-B0371273A

PATIENT
  Sex: Female

DRUGS (2)
  1. MELPHALAN [Suspect]
     Dosage: 1MGK PER DAY
     Route: 048
  2. RADIOTHERAPY [Concomitant]
     Route: 065

REACTIONS (2)
  - HAEMORRHAGE [None]
  - THROMBOCYTOPENIA [None]
